FAERS Safety Report 6952869-4 (Version None)
Quarter: 2010Q3

REPORT INFORMATION
  Report Type: 
  Country: None (occurrence: None)
  Receive Date: 20100829
  Receipt Date: 20100517
  Transmission Date: 20110219
  Serious: No
  Sender: FDA-Public Use
  Company Number: US-ABBOTT-10P-163-0646437-00

PATIENT
  Sex: Female
  Weight: 86.26 kg

DRUGS (10)
  1. NIASPAN [Suspect]
     Indication: BLOOD CHOLESTEROL INCREASED
     Dates: start: 20100513, end: 20100513
  2. LISINOPRIL [Concomitant]
     Indication: HYPERTENSION
  3. HYDROCHLOROTHIAZIDE [Concomitant]
     Indication: HYPERTENSION
  4. METOPROLOL [Concomitant]
     Indication: PALPITATIONS
  5. METOPROLOL [Concomitant]
     Indication: HYPERTENSION
  6. TRICOR [Concomitant]
     Indication: BLOOD TRIGLYCERIDES INCREASED
  7. SIMVASTATIN [Concomitant]
     Indication: BLOOD CHOLESTEROL INCREASED
  8. SINGULAIR [Concomitant]
     Indication: HYPERSENSITIVITY
  9. ALPRAZOLAM [Concomitant]
     Indication: ANXIETY
  10. ZYPREXA [Concomitant]
     Indication: ANXIOLYTIC THERAPY

REACTIONS (3)
  - FLUSHING [None]
  - PALPITATIONS [None]
  - PARAESTHESIA [None]
